FAERS Safety Report 6860133-7 (Version None)
Quarter: 2010Q2

REPORT INFORMATION
  Report Type: 
  Country: None (occurrence: None)
  Receive Date: 20100528
  Receipt Date: 20091218
  Transmission Date: 20101027
  Serious: Yes (Hospitalization)
  Sender: FDA-Public Use
  Company Number: CIP09003539

PATIENT
  Age: 71 Year
  Sex: Female

DRUGS (6)
  1. ACTONEL [Suspect]
     Dosage: 150 MG MONTHLY, ORAL ; 150 MG, 1 ONLY
     Route: 048
     Dates: start: 20090101, end: 20090101
  2. ACTONEL [Suspect]
     Dosage: 150 MG MONTHLY, ORAL ; 150 MG, 1 ONLY
     Route: 048
     Dates: start: 20091001, end: 20091001
  3. OTHER ANTIHYPERTENSIVES [Concomitant]
  4. CRESTOR [Concomitant]
  5. VERAPAMIL [Concomitant]
  6. SYNTHROID [Concomitant]

REACTIONS (7)
  - ABDOMINAL PAIN UPPER [None]
  - CHILLS [None]
  - DEHYDRATION [None]
  - INFLUENZA LIKE ILLNESS [None]
  - NAUSEA [None]
  - PYREXIA [None]
  - VOMITING [None]
